FAERS Safety Report 11938575 (Version 3)
Quarter: 2016Q1

REPORT INFORMATION
  Report Type: Spontaneous
  Country: JP (occurrence: JP)
  Receive Date: 20160122
  Receipt Date: 20160325
  Transmission Date: 20160526
  Serious: Yes (Hospitalization, Other)
  Sender: FDA-Public Use
  Company Number: JP-GLAXOSMITHKLINE-JP2016JPN001296

PATIENT
  Age: 55 Year
  Sex: Male
  Weight: 56 kg

DRUGS (14)
  1. LITIOMAL [Concomitant]
     Active Substance: LITHIUM CARBONATE
     Dosage: 200 MG, BID
     Dates: start: 201503
  2. LITIOMAL [Concomitant]
     Active Substance: LITHIUM CARBONATE
     Dosage: 200 MG, BID
     Dates: start: 20151125
  3. HALRACK [Concomitant]
     Active Substance: TRIAZOLAM
     Dosage: 0.25 MG, 1D
     Dates: start: 20151125
  4. SULPIRIDE [Concomitant]
     Active Substance: SULPIRIDE
     Dosage: 50 MG, TID
     Dates: start: 20151125
  5. LITIOMAL [Concomitant]
     Active Substance: LITHIUM CARBONATE
     Dosage: 200 MG, 1D
     Dates: start: 200504, end: 201503
  6. LAMICTAL [Suspect]
     Active Substance: LAMOTRIGINE
     Indication: BIPOLAR DISORDER
     Dosage: 25 MG, 1D
     Route: 048
     Dates: start: 20151125, end: 20151215
  7. HALRACK [Concomitant]
     Active Substance: TRIAZOLAM
     Dosage: 1 DF, 1D
     Dates: start: 20150603, end: 20150731
  8. ROHYPNOL [Concomitant]
     Active Substance: FLUNITRAZEPAM
     Dosage: 1 DF, 1D
     Dates: start: 20150603, end: 20150731
  9. DIAZEPAM. [Concomitant]
     Active Substance: DIAZEPAM
     Dosage: 5 MG, 1D
     Dates: start: 20151125
  10. DIAZEPAM. [Concomitant]
     Active Substance: DIAZEPAM
     Dosage: 5 MG, PRN
     Dates: start: 20150603, end: 20150731
  11. LAMICTAL [Suspect]
     Active Substance: LAMOTRIGINE
     Dosage: 50 MG, 1D
     Route: 048
     Dates: start: 20151216, end: 20151218
  12. LITIOMAL [Concomitant]
     Active Substance: LITHIUM CARBONATE
     Dosage: 600 MG, 1D
     Dates: start: 20150603, end: 20150731
  13. ROHYPNOL [Concomitant]
     Active Substance: FLUNITRAZEPAM
     Dosage: 4 MG, QD
     Dates: start: 20151125
  14. HALRACK [Concomitant]
     Active Substance: TRIAZOLAM
     Dosage: 0.5 MG, QD
     Dates: start: 201503

REACTIONS (8)
  - Nausea [Recovered/Resolved]
  - Malaise [Recovered/Resolved]
  - Pyrexia [Recovered/Resolved]
  - Rash generalised [Recovered/Resolved]
  - Pancytopenia [Recovered/Resolved]
  - Decreased appetite [Recovered/Resolved]
  - Hepatic enzyme increased [Recovered/Resolved]
  - Hepatic function abnormal [Recovered/Resolved]

NARRATIVE: CASE EVENT DATE: 201512
